FAERS Safety Report 6150721-8 (Version None)
Quarter: 2009Q2

REPORT INFORMATION
  Report Type: 
  Country: None (occurrence: None)
  Receive Date: 20090408
  Receipt Date: 20090326
  Transmission Date: 20091009
  Serious: Yes (Hospitalization)
  Sender: FDA-Public Use
  Company Number: 237084J08USA

PATIENT
  Age: 53 Year
  Sex: Female
  Weight: 91 kg

DRUGS (10)
  1. REBIF [Suspect]
     Indication: MULTIPLE SCLEROSIS
     Dosage: 44 MCG, 3 IN 1 WEEKS, SUBCUTANEOUS
     Route: 058
     Dates: start: 20080325, end: 20080822
  2. VALTREX [Concomitant]
  3. HYDROCHLOROTHIAZIDE [Concomitant]
  4. ARICEPT [Concomitant]
  5. TRILEPTAL [Concomitant]
  6. KLONOPIN [Concomitant]
  7. GABAPENTIN [Concomitant]
  8. XIFAXAN (RIFAXIMIN) [Concomitant]
  9. CYTOXAN [Concomitant]
  10. SOLU-MEDROL [Concomitant]

REACTIONS (15)
  - ABDOMINAL PAIN LOWER [None]
  - ATELECTASIS [None]
  - BRONCHITIS [None]
  - CARDIOMEGALY [None]
  - CHEST PAIN [None]
  - DIARRHOEA [None]
  - GASTROINTESTINAL DISORDER [None]
  - HAEMOPTYSIS [None]
  - HEPATIC LESION [None]
  - INFLUENZA [None]
  - INJECTION SITE HAEMATOMA [None]
  - INJECTION SITE INFLAMMATION [None]
  - RENAL DISORDER [None]
  - UPPER RESPIRATORY TRACT INFECTION [None]
  - WEIGHT INCREASED [None]
